FAERS Safety Report 12241167 (Version 1)
Quarter: 2016Q2

REPORT INFORMATION
  Report Type: Spontaneous
  Country: GB (occurrence: GB)
  Receive Date: 20160406
  Receipt Date: 20160406
  Transmission Date: 20160815
  Serious: Yes (Hospitalization)
  Sender: FDA-Public Use
  Company Number: GB-AUROBINDO-AUR-APL-2016-04190

PATIENT
  Age: 84 Year
  Sex: Male

DRUGS (1)
  1. CELECOXIB. [Suspect]
     Active Substance: CELECOXIB
     Indication: BLADDER CANCER
     Dosage: UNK
     Route: 065
     Dates: start: 20090407

REACTIONS (2)
  - Orchitis noninfective [Recovered/Resolved with Sequelae]
  - Granuloma [Recovered/Resolved with Sequelae]

NARRATIVE: CASE EVENT DATE: 201004
